FAERS Safety Report 4333672-0 (Version None)
Quarter: 2004Q2

REPORT INFORMATION
  Report Type: 
  Country: None (occurrence: None)
  Receive Date: 20040406
  Receipt Date: 20040406
  Transmission Date: 20050107
  Serious: No
  Sender: FDA-Public Use
  Company Number: None

PATIENT
  Age: 69 Year
  Sex: Male
  Weight: 122.4712 kg

DRUGS (2)
  1. PHENYTOIN [Suspect]
     Indication: CONVULSION
     Dosage: LOADING DOSE
  2. FOSPHENYTOIN SODIUM [Suspect]

REACTIONS (2)
  - MEDICATION ERROR [None]
  - PHLEBITIS [None]
